FAERS Safety Report 20429115 (Version 1)
Quarter: 2022Q1

REPORT INFORMATION
  Report Type: Spontaneous
  Country: US (occurrence: None)
  Receive Date: 20220203
  Receipt Date: 20220203
  Transmission Date: 20220423
  Serious: No
  Sender: FDA-Public Use
  Company Number: None

PATIENT
  Age: 34 Year
  Sex: Female
  Weight: 74.25 kg

DRUGS (1)
  1. QUETIAPINE [Suspect]
     Active Substance: QUETIAPINE
     Dosage: OTHER QUANTITY : 1 TABLET(S);?FREQUENCY : AT BEDTIME;?
     Route: 048

REACTIONS (12)
  - Pyrexia [None]
  - Heart rate increased [None]
  - Hyperhidrosis [None]
  - Feeling hot [None]
  - Chills [None]
  - Confusional state [None]
  - Tremor [None]
  - Tension [None]
  - Hypoaesthesia [None]
  - Tachycardia [None]
  - White blood cell count increased [None]
  - Blood creatine increased [None]

NARRATIVE: CASE EVENT DATE: 20220119
